FAERS Safety Report 7489000-5 (Version None)
Quarter: 2011Q2

REPORT INFORMATION
  Report Type: 
  Country: None (occurrence: None)
  Receive Date: 20110518
  Receipt Date: 20110323
  Transmission Date: 20111010
  Serious: Yes (Death, Life-Threatening, Hospitalization)
  Sender: FDA-Public Use
  Company Number: US-BAYER-200827782NA

PATIENT
  Age: 82 Year
  Sex: Female
  Weight: 78 kg

DRUGS (8)
  1. VITAMIN B6 [Concomitant]
     Indication: ROUTINE HEALTH MAINTENANCE
     Route: 048
     Dates: start: 20080501
  2. SORAFENIB (RAF KINASE INHIBITOR) [Suspect]
     Indication: RENAL CELL CARCINOMA
     Dosage: 400 MG, BID
     Route: 048
     Dates: start: 20080626, end: 20080702
  3. IBUPROFEN [Concomitant]
     Indication: PAIN
     Dosage: 1/2 DAILY AS NEEDED FOR PAIN
     Route: 048
     Dates: start: 20060901
  4. LEXAPRO [Concomitant]
     Indication: ANXIETY
     Route: 048
     Dates: start: 20060901
  5. LEXAPRO [Concomitant]
     Indication: DEPRESSION
  6. IBUPROFEN [Concomitant]
  7. LEVOTHYROXINE SODIUM [Concomitant]
     Indication: HYPOTHYROIDISM
     Route: 048
     Dates: start: 20060901
  8. VITAMIN B12 [Concomitant]
     Indication: ROUTINE HEALTH MAINTENANCE
     Route: 048
     Dates: start: 20080501

REACTIONS (5)
  - RENAL FAILURE ACUTE [None]
  - DISSEMINATED INTRAVASCULAR COAGULATION [None]
  - ERYTHEMA MULTIFORME [None]
  - FATIGUE [None]
  - SEPTIC SHOCK [None]
